FAERS Safety Report 9571297 (Version 1)
Quarter: 2013Q1

REPORT INFORMATION
  Report Type: Spontaneous
  Country: US (occurrence: None)
  Receive Date: 20120515
  Receipt Date: 20120515
  Transmission Date: 20140127
  Serious: Yes (Other)
  Sender: FDA-Public Use
  Company Number: PHHY2010US16156

PATIENT
  Sex: Female

DRUGS (1)
  1. ZOMETA (ZOLEDRONATE) [Suspect]
     Dates: start: 201002

REACTIONS (3)
  - Confusional state [None]
  - Anxiety [None]
  - Bone pain [None]
